FAERS Safety Report 9969576 (Version 1)
Quarter: 2014Q1

REPORT INFORMATION
  Report Type: Spontaneous
  Country: US (occurrence: None)
  Receive Date: 20140304
  Receipt Date: 20140304
  Transmission Date: 20141002
  Serious: No
  Sender: FDA-Public Use
  Company Number: None

PATIENT
  Age: 45 Year
  Sex: Female

DRUGS (3)
  1. CYTOXAN [Suspect]
  2. METHOTREXATE [Suspect]
  3. ENBREL [Concomitant]

REACTIONS (4)
  - Vomiting [None]
  - Nausea [None]
  - Pyrexia [None]
  - Headache [None]
